FAERS Safety Report 9702584 (Version 1)
Quarter: 2013Q4

REPORT INFORMATION
  Report Type: Spontaneous
  Country: DK (occurrence: FR)
  Receive Date: 20131121
  Receipt Date: 20131121
  Transmission Date: 20140711
  Serious: Yes (Hospitalization)
  Sender: FDA-Public Use
  Company Number: FR-FRI-1000051547

PATIENT
  Age: 87 Year
  Sex: Male

DRUGS (6)
  1. CITALOPRAM [Suspect]
     Dosage: 1 DF
     Route: 048
     Dates: start: 20120625
  2. XARELTO [Suspect]
     Indication: ATRIAL FIBRILLATION
     Dosage: 1 DF
     Route: 048
     Dates: start: 20130306, end: 20131002
  3. RENITEC [Concomitant]
     Indication: HYPERTENSION
     Route: 048
  4. LASILIX [Concomitant]
     Indication: HYPERTENSION
     Route: 048
  5. PRAVASTATIN SODIUM [Concomitant]
     Route: 048
  6. ADENURIC [Concomitant]
     Route: 048

REACTIONS (1)
  - Subdural haematoma [Unknown]
